FAERS Safety Report 9298612 (Version 1)
Quarter: 2013Q2

REPORT INFORMATION
  Report Type: Spontaneous
  Country: CH (occurrence: CH)
  Receive Date: 20130520
  Receipt Date: 20130520
  Transmission Date: 20140414
  Serious: Yes (Other)
  Sender: FDA-Public Use
  Company Number: CH-ELI_LILLY_AND_COMPANY-CH201305003522

PATIENT
  Sex: 0
  Weight: 1.76 kg

DRUGS (10)
  1. EUTHYROX [Concomitant]
     Dosage: 125 UG, QD
     Route: 064
  2. EUTHYROX [Concomitant]
     Dosage: 125 UG, QD
     Route: 064
  3. FLUCTINE [Suspect]
     Dosage: 20 MG, QD
     Route: 064
  4. FLUCTINE [Suspect]
     Dosage: 20 MG, QD
     Route: 064
  5. ABILIFY [Concomitant]
     Dosage: 20 MG, QD
     Route: 064
  6. ABILIFY [Concomitant]
     Dosage: 20 MG, QD
     Route: 064
  7. DALMADORM [Concomitant]
     Dosage: 30 MG, QD
     Route: 064
  8. DALMADORM [Concomitant]
     Dosage: 30 MG, QD
     Route: 064
  9. LEXOTANIL [Concomitant]
     Dosage: 1.5 MG, QD
     Route: 064
  10. LEXOTANIL [Concomitant]
     Dosage: 1.5 MG, QD
     Route: 064

REACTIONS (4)
  - Foetal distress syndrome [Unknown]
  - Foetal growth restriction [Unknown]
  - Small for dates baby [Unknown]
  - Foetal exposure during pregnancy [Recovered/Resolved]
